FAERS Safety Report 4954560-2 (Version None)
Quarter: 2006Q1

REPORT INFORMATION
  Report Type: 
  Country: None (occurrence: None)
  Receive Date: 20060322
  Receipt Date: 20060313
  Transmission Date: 20060701
  Serious: Yes (Other)
  Sender: FDA-Public Use
  Company Number: 2006-02-1766

PATIENT
  Age: 4 Month
  Sex: Male
  Weight: 5.5 kg

DRUGS (4)
  1. NASONEX [Suspect]
     Indication: LARYNGOMALACIA
     Dosage: 1 PUFF QD NASAL SPRAY
     Route: 045
     Dates: start: 20060201, end: 20060223
  2. MOPRAL (OMEPRAZOLE) CAPSULE [Concomitant]
  3. ZYMAFLUOR [Concomitant]
  4. VITAMIN D3 [Concomitant]

REACTIONS (9)
  - APNOEA [None]
  - CRYING [None]
  - HYPOTONIA [None]
  - IRRITABILITY [None]
  - LACRIMATION INCREASED [None]
  - LOSS OF CONSCIOUSNESS [None]
  - MALAISE [None]
  - PALLOR [None]
  - SYNCOPE VASOVAGAL [None]
